FAERS Safety Report 4419797-X (Version None)
Quarter: 2004Q3

REPORT INFORMATION
  Report Type: 
  Country: None (occurrence: None)
  Receive Date: 20040809
  Receipt Date: 20040310
  Transmission Date: 20050211
  Serious: No
  Sender: FDA-Public Use
  Company Number: US-GLAXOSMITHKLINE-A0502172A

PATIENT
  Age: 43 Year
  Sex: Female

DRUGS (3)
  1. PAXIL [Suspect]
     Indication: IRRITABLE BOWEL SYNDROME
     Dosage: 25MG PER DAY
     Route: 048
     Dates: start: 20020821
  2. BELLADONNA [Concomitant]
  3. NAPROSYN [Concomitant]

REACTIONS (8)
  - CONFUSIONAL STATE [None]
  - DRUG WITHDRAWAL SYNDROME [None]
  - HEADACHE [None]
  - IRRITABLE BOWEL SYNDROME [None]
  - MOOD SWINGS [None]
  - OVARIAN CYST [None]
  - PAIN [None]
  - URTICARIA [None]
